FAERS Safety Report 9172814 (Version 1)
Quarter: 2012Q4

REPORT INFORMATION
  Report Type: 
  Country: US (occurrence: US)
  Receive Date: 20120911
  Receipt Date: 20120911
  Transmission Date: 20130627
  Serious: Yes (Hospitalization, Congenital Anomaly, Other)
  Sender: FDA-Public Use
  Company Number: US-RB-043956-12

PATIENT
  Age: 0 None
  Sex: Male

DRUGS (5)
  1. SUBOXONE TABLET [Suspect]
     Indication: DRUG DEPENDENCE
     Route: 064
     Dates: start: 200905, end: 200907
  2. SUBUTEX [Suspect]
     Route: 064
     Dates: start: 200907, end: 200908
  3. SUBUTEX [Suspect]
     Indication: DRUG DEPENDENCE
     Route: 064
     Dates: start: 200908, end: 20100128
  4. NICOTINE [Suspect]
     Indication: NICOTINE DEPENDENCE
     Dosage: Dose unknown; small amount
     Route: 064
     Dates: start: 200905, end: 20100128
  5. PRENATAL VITAMINS [Concomitant]
     Indication: PREGNANCY
     Dosage: 1 capsule once daily
     Route: 064
     Dates: end: 20100128

REACTIONS (7)
  - Cri du Chat syndrome [Not Recovered/Not Resolved]
  - Cardiac valve disease [Recovering/Resolving]
  - Cleft lip [Recovered/Resolved]
  - Feeding disorder neonatal [Not Recovered/Not Resolved]
  - Speech disorder developmental [Not Recovered/Not Resolved]
  - Motor developmental delay [Not Recovered/Not Resolved]
  - Foetal exposure during pregnancy [Recovered/Resolved]
